FAERS Safety Report 5840645-5 (Version None)
Quarter: 2008Q3

REPORT INFORMATION
  Report Type: 
  Country: None (occurrence: None)
  Receive Date: 20080731
  Receipt Date: 20080513
  Transmission Date: 20090109
  Serious: No
  Sender: FDA-Public Use
  Company Number: US200803006800

PATIENT
  Age: 62 Year
  Sex: Male
  Weight: 95.2 kg

DRUGS (5)
  1. BYETTA [Suspect]
     Indication: TYPE 2 DIABETES MELLITUS
     Dosage: 5 UG, 2/D, SUBCUTANEOUS : 10 UG, 2/D, SUBCUTANEOUS
     Route: 058
     Dates: end: 20080101
  2. BYETTA [Suspect]
     Indication: TYPE 2 DIABETES MELLITUS
     Dosage: 5 UG, 2/D, SUBCUTANEOUS : 10 UG, 2/D, SUBCUTANEOUS
     Route: 058
     Dates: start: 20060101
  3. BYETTA [Suspect]
     Indication: TYPE 2 DIABETES MELLITUS
     Dosage: 5 UG, 2/D, SUBCUTANEOUS : 10 UG, 2/D, SUBCUTANEOUS
     Route: 058
     Dates: start: 20080101
  4. METFORMIN HCL [Concomitant]
  5. STARLIX [Concomitant]

REACTIONS (13)
  - ABDOMINAL PAIN UPPER [None]
  - BLOOD GLUCOSE INCREASED [None]
  - CHOKING [None]
  - COUGH [None]
  - DIARRHOEA [None]
  - MALAISE [None]
  - NASAL CONGESTION [None]
  - NAUSEA [None]
  - RHINORRHOEA [None]
  - SINUS HEADACHE [None]
  - SNEEZING [None]
  - STOMACH DISCOMFORT [None]
  - VOMITING [None]
